FAERS Safety Report 17016985 (Version 1)
Quarter: 2019Q4

REPORT INFORMATION
  Report Type: Spontaneous
  Country: US (occurrence: US)
  Receive Date: 20191004
  Receipt Date: 20191004
  Transmission Date: 20200122
  Serious: No
  Sender: FDA-Public Use
  Company Number: None

PATIENT
  Age: 27 Year
  Sex: Female

DRUGS (1)
  1. HUMIRA [Suspect]
     Active Substance: ADALIMUMAB
     Indication: CROHN^S DISEASE
     Route: 058
     Dates: start: 201511

REACTIONS (5)
  - Large intestinal ulcer [None]
  - Muscle spasms [None]
  - Disease recurrence [None]
  - Laboratory test abnormal [None]
  - Defaecation urgency [None]

NARRATIVE: CASE EVENT DATE: 201906
